FAERS Safety Report 6929078-8 (Version None)
Quarter: 2010Q3

REPORT INFORMATION
  Report Type: 
  Country: None (occurrence: None)
  Receive Date: 20100811
  Receipt Date: 20100726
  Transmission Date: 20110219
  Serious: Yes (Other)
  Sender: FDA-Public Use
  Company Number: APP201000621

PATIENT
  Age: 23 Year
  Sex: Male

DRUGS (6)
  1. VANCOMYCIN HYDROCHLORIDE [Suspect]
     Indication: PRODUCT USED FOR UNKNOWN INDICATION
     Dosage: (1 G/BID, 14 G IN TOTAL)
  2. MEROPENEM [Suspect]
     Indication: PRODUCT USED FOR UNKNOWN INDICATION
     Dosage: (1 G/TID, 27 G IN TOTAL)
  3. PREDNISOLONE [Suspect]
     Indication: JUVENILE ARTHRITIS
     Dosage: (60 MG/DAY) ORAL
     Route: 048
  4. METHYLPREDNISOLONE [Suspect]
     Dosage: (1 G/DAY, 3 G IN TOTAL) INTRAVENOUS
     Route: 042
  5. LINEZOLID [Concomitant]
  6. CASPOFUNGIN [Concomitant]

REACTIONS (21)
  - ANAPHYLACTIC REACTION [None]
  - COLD SWEAT [None]
  - DRUG TOXICITY [None]
  - FLUSHING [None]
  - FUNGAL SEPSIS [None]
  - HEPATIC ENCEPHALOPATHY [None]
  - HEPATIC FAILURE [None]
  - JUVENILE ARTHRITIS [None]
  - MYALGIA [None]
  - OEDEMA [None]
  - PERICARDITIS [None]
  - PETECHIAE [None]
  - PHARYNGITIS [None]
  - PLEURISY [None]
  - RASH VESICULAR [None]
  - RENAL FAILURE [None]
  - RESPIRATORY FAILURE [None]
  - STAPHYLOCOCCAL SEPSIS [None]
  - TACHYCARDIA [None]
  - TOOTH ABSCESS [None]
  - TREMOR [None]
